FAERS Safety Report 7983567-6 (Version None)
Quarter: 2011Q4

REPORT INFORMATION
  Report Type: 
  Country: None (occurrence: None)
  Receive Date: 20111215
  Receipt Date: 20111207
  Transmission Date: 20120403
  Serious: Yes (Other)
  Sender: FDA-Public Use
  Company Number: PHHY2011BR107444

PATIENT
  Sex: Male

DRUGS (2)
  1. RITALIN LA [Suspect]
     Dosage: 2 DF, QD
     Route: 048
  2. RITALIN LA [Suspect]
     Dosage: 1 DF, QD
     Route: 048

REACTIONS (4)
  - DECREASED APPETITE [None]
  - SYNCOPE [None]
  - DRUG DEPENDENCE [None]
  - PERFORMANCE STATUS DECREASED [None]
